FAERS Safety Report 24923580 (Version 2)
Quarter: 2025Q1

REPORT INFORMATION
  Report Type: Spontaneous
  Country: FR (occurrence: FR)
  Receive Date: 20250204
  Receipt Date: 20250312
  Transmission Date: 20250409
  Serious: No
  Sender: ALEXION PHARMACEUTICALS
  Company Number: FR-AstraZeneca-CH-00797054A

PATIENT
  Age: 29 Year

DRUGS (1)
  1. DAPAGLIFLOZIN [Suspect]
     Active Substance: DAPAGLIFLOZIN
     Indication: Peripartum cardiomyopathy

REACTIONS (2)
  - Exposure during pregnancy [Unknown]
  - Off label use [Unknown]
